FAERS Safety Report 6929245-3 (Version None)
Quarter: 2010Q3

REPORT INFORMATION
  Report Type: 
  Country: None (occurrence: None)
  Receive Date: 20100813
  Receipt Date: 20100728
  Transmission Date: 20110219
  Serious: Yes (Hospitalization)
  Sender: FDA-Public Use
  Company Number: 7012812

PATIENT
  Age: 53 Year
  Sex: Female

DRUGS (8)
  1. REBIF [Suspect]
     Indication: MULTIPLE SCLEROSIS
     Dosage: 8.8 MCG, 3 IN 1 WK, SUBCUTANEOUS ; 22 MCG, 3 IN 1 WK, SUBCUTANEOUS
     Route: 058
     Dates: start: 20100623, end: 20100101
  2. REBIF [Suspect]
     Indication: MULTIPLE SCLEROSIS
     Dosage: 8.8 MCG, 3 IN 1 WK, SUBCUTANEOUS ; 22 MCG, 3 IN 1 WK, SUBCUTANEOUS
     Route: 058
     Dates: start: 20100101
  3. CYMBALTA [Concomitant]
  4. XANAX [Concomitant]
  5. BACLOFEN [Concomitant]
  6. PROVIGIL [Concomitant]
  7. COUMADIN [Concomitant]
  8. COPAXONE [Concomitant]

REACTIONS (8)
  - AMNESIA [None]
  - ANXIETY [None]
  - CHEST DISCOMFORT [None]
  - FAMILY STRESS [None]
  - MULTIPLE SCLEROSIS RELAPSE [None]
  - PALLOR [None]
  - SKIN DISCOLOURATION [None]
  - STRESS [None]
